FAERS Safety Report 8212520-2 (Version None)
Quarter: 2012Q1

REPORT INFORMATION
  Report Type: 
  Country: None (occurrence: None)
  Receive Date: 20120315
  Receipt Date: 20120308
  Transmission Date: 20120608
  Serious: Yes (Hospitalization)
  Sender: FDA-Public Use
  Company Number: CH-GLAXOSMITHKLINE-B0788434A

PATIENT
  Age: 93 Year
  Sex: Female
  Weight: 76 kg

DRUGS (5)
  1. ARIXTRA [Suspect]
     Indication: EMBOLISM VENOUS
     Route: 058
     Dates: start: 20111230
  2. INDERAL [Concomitant]
     Dosage: 80MG PER DAY
     Route: 048
  3. SINTROM [Suspect]
     Indication: EMBOLISM VENOUS
     Route: 048
     Dates: start: 20111230
  4. ASPIRIN [Concomitant]
     Route: 048
  5. OXAZEPAM [Concomitant]
     Indication: SLEEP DISORDER
     Dosage: 7.5MG PER DAY
     Route: 048

REACTIONS (2)
  - RASH PUSTULAR [None]
  - INJECTION SITE REACTION [None]
